FAERS Safety Report 20040169 (Version 2)
Quarter: 2021Q4

REPORT INFORMATION
  Report Type: Report from Study
  Country: CO (occurrence: CO)
  Receive Date: 20211106
  Receipt Date: 20211124
  Transmission Date: 20220303
  Serious: Yes (Hospitalization)
  Sender: FDA-Public Use
  Company Number: CO-NOVARTISPH-NVSC2021CO253634

PATIENT
  Sex: Female
  Weight: 46 kg

DRUGS (2)
  1. OMNITROPE [Suspect]
     Active Substance: SOMATROPIN
     Indication: Growth hormone deficiency
     Dosage: 1.8 MG, QD
     Route: 065
     Dates: start: 20191114
  2. OMNITROPE [Suspect]
     Active Substance: SOMATROPIN
     Dosage: 1 DF QD (APPROXIMATELY 2 YEARS AGO)
     Route: 058

REACTIONS (1)
  - Juvenile myoclonic epilepsy [Unknown]
